FAERS Safety Report 13911473 (Version 1)
Quarter: 2017Q3

REPORT INFORMATION
  Report Type: Spontaneous
  Country: US (occurrence: US)
  Receive Date: 20170828
  Receipt Date: 20170828
  Transmission Date: 20171127
  Serious: No
  Sender: FDA-Public Use
  Company Number: US-ROCHE-1141652

PATIENT
  Sex: Male
  Weight: 48.7 kg

DRUGS (7)
  1. NUTROPIN AQ [Suspect]
     Active Substance: SOMATROPIN
     Indication: GROWTH FAILURE
     Route: 058
     Dates: start: 19990429
  2. NUTROPIN AQ [Suspect]
     Active Substance: SOMATROPIN
     Route: 058
  3. SYNTHROID [Concomitant]
     Active Substance: LEVOTHYROXINE SODIUM
     Route: 065
  4. NUTROPIN AQ [Suspect]
     Active Substance: SOMATROPIN
     Indication: GROWTH HORMONE DEFICIENCY
     Route: 058
  5. NUTROPIN AQ [Suspect]
     Active Substance: SOMATROPIN
     Route: 058
  6. CLARITIN [Concomitant]
     Active Substance: LORATADINE
  7. NUTROPIN AQ [Suspect]
     Active Substance: SOMATROPIN
     Route: 058

REACTIONS (13)
  - Drug dose omission [Unknown]
  - Pharyngitis streptococcal [Unknown]
  - Weight decreased [Unknown]
  - Nausea [Unknown]
  - Pain [Unknown]
  - Hypersensitivity [Unknown]
  - Skin odour abnormal [Unknown]
  - Myalgia [Unknown]
  - Arthralgia [Unknown]
  - Sinusitis [Unknown]
  - Dizziness [Unknown]
  - Diarrhoea [Unknown]
  - Joint injury [Unknown]
